FAERS Safety Report 17824982 (Version 1)
Quarter: 2020Q2

REPORT INFORMATION
  Report Type: Spontaneous
  Country: US (occurrence: US)
  Receive Date: 20200526
  Receipt Date: 20200526
  Transmission Date: 20200714
  Serious: Yes (Hospitalization)
  Sender: FDA-Public Use
  Company Number: None

PATIENT
  Age: 92 Year
  Sex: Male

DRUGS (9)
  1. ATORVASTATIN [Concomitant]
     Active Substance: ATORVASTATIN
  2. RETACRIT [Suspect]
     Active Substance: EPOETIN ALFA-EPBX
     Indication: CHRONIC KIDNEY DISEASE
     Route: 058
     Dates: start: 20200512
  3. FUROSEMIDE. [Concomitant]
     Active Substance: FUROSEMIDE
  4. GABAPENTIN. [Concomitant]
     Active Substance: GABAPENTIN
  5. CARVEDILOL. [Concomitant]
     Active Substance: CARVEDILOL
  6. PANTOPRAZOLE [Concomitant]
     Active Substance: PANTOPRAZOLE
  7. MONTELUKAST [Concomitant]
     Active Substance: MONTELUKAST SODIUM
  8. LEVETIRACETA [Concomitant]
  9. LEVOTHYROXIN [Concomitant]
     Active Substance: LEVOTHYROXINE

REACTIONS (5)
  - Haemoglobin decreased [None]
  - Haematocrit decreased [None]
  - Platelet count decreased [None]
  - Asthenia [None]
  - Syncope [None]

NARRATIVE: CASE EVENT DATE: 20200515
